FAERS Safety Report 7065450-6 (Version None)
Quarter: 2010Q4

REPORT INFORMATION
  Report Type: 
  Country: None (occurrence: None)
  Receive Date: 20101027
  Receipt Date: 20101004
  Transmission Date: 20110411
  Serious: No
  Sender: FDA-Public Use
  Company Number: US-PFIZER INC-2010126193

PATIENT
  Age: 77 Year
  Sex: Female

DRUGS (3)
  1. DETROL LA [Suspect]
     Indication: HYPERTONIC BLADDER
     Dosage: 4 MG, UNK
  2. DETROL [Suspect]
     Dosage: 4 MG, UNK
  3. TOVIAZ [Suspect]
     Dosage: UNK

REACTIONS (3)
  - CONSTIPATION [None]
  - DRUG INEFFECTIVE [None]
  - DRY SKIN [None]
